FAERS Safety Report 14482749 (Version 7)
Quarter: 2023Q4

REPORT INFORMATION
  Report Type: Spontaneous
  Country: IT (occurrence: IT)
  Receive Date: 20180203
  Receipt Date: 20231231
  Transmission Date: 20240109
  Serious: Yes (Life-Threatening, Other)
  Sender: FDA-Public Use
  Company Number: IT-AUROBINDO-AUR-APL-2018-004388

PATIENT
  Age: 65 Year
  Sex: Male

DRUGS (7)
  1. CARVEDILOL [Suspect]
     Active Substance: CARVEDILOL
     Indication: Hypertension
     Dosage: STOP DATE: UNKNOWN DATE OF 2017 OR 2018 ()
     Route: 048
     Dates: start: 2010
  2. RAMIPRIL [Suspect]
     Active Substance: RAMIPRIL
     Indication: Hypertension
     Dosage: STOP DATE: UNKNOWN DATE OF 2017 OR 2018 ()
     Route: 048
     Dates: start: 2010
  3. DOXAZOSIN [Suspect]
     Active Substance: DOXAZOSIN MESYLATE
     Indication: Hypertension
     Dosage: STOP DATE: UNKNOWN DATE OF 2017 OR 2018 ()
     Route: 048
     Dates: start: 2010
  4. HYDROCHLOROTHIAZIDE\RAMIPRIL [Suspect]
     Active Substance: HYDROCHLOROTHIAZIDE\RAMIPRIL
     Indication: Hypertension
     Dosage: UNK
     Route: 065
     Dates: start: 2010
  5. CRATAEGUS LAEVIGATA FRUIT [Concomitant]
     Active Substance: CRATAEGUS LAEVIGATA FRUIT
     Indication: Product used for unknown indication
     Route: 065
  6. CRATAEGUS LAEVIGATA FRUIT [Concomitant]
     Active Substance: CRATAEGUS LAEVIGATA FRUIT
     Dosage: ()
  7. HERBALS [Concomitant]
     Active Substance: HERBALS
     Indication: Product used for unknown indication

REACTIONS (18)
  - Angioedema [Recovering/Resolving]
  - Bronchial disorder [Recovering/Resolving]
  - Abdominal distension [Unknown]
  - Oedema peripheral [Unknown]
  - Dyspnoea [Recovering/Resolving]
  - Cough [Unknown]
  - Gastrointestinal disorder [Recovering/Resolving]
  - Oesophageal disorder [Recovering/Resolving]
  - Mouth breathing [Recovering/Resolving]
  - Salivary hypersecretion [Recovering/Resolving]
  - Orthostatic hypotension [Unknown]
  - Somnolence [Unknown]
  - Asthma [Unknown]
  - Speech disorder [Recovering/Resolving]
  - Respiratory disorder [Unknown]
  - Abdominal discomfort [Unknown]
  - Localised oedema [Unknown]
  - Oesophageal discomfort [Unknown]

NARRATIVE: CASE EVENT DATE: 20170101
